FAERS Safety Report 7170597-X (Version None)
Quarter: 2010Q4

REPORT INFORMATION
  Report Type: 
  Country: None (occurrence: None)
  Receive Date: 20101217
  Receipt Date: 20101207
  Transmission Date: 20110411
  Serious: Yes (Hospitalization)
  Sender: FDA-Public Use
  Company Number: A0805828A

PATIENT
  Age: 63 Year
  Sex: Female
  Weight: 152.3 kg

DRUGS (9)
  1. AVANDIA [Suspect]
     Dosage: 4MG PER DAY
     Route: 048
     Dates: end: 20070401
  2. TOPROL-XL [Concomitant]
  3. LISINOPRIL [Concomitant]
  4. DIGOXIN [Concomitant]
  5. GLUCOVANCE [Concomitant]
  6. PROTONIX [Concomitant]
  7. PRAVACHOL [Concomitant]
  8. DITROPAN XL [Concomitant]
  9. GLUCOVANCE [Concomitant]

REACTIONS (3)
  - ATRIAL FIBRILLATION [None]
  - CARDIAC FAILURE CONGESTIVE [None]
  - CARDIAC PACEMAKER INSERTION [None]
